FAERS Safety Report 7165750-5 (Version None)
Quarter: 2010Q4

REPORT INFORMATION
  Report Type: 
  Country: None (occurrence: None)
  Receive Date: 20101215
  Receipt Date: 20091222
  Transmission Date: 20110411
  Serious: No
  Sender: FDA-Public Use
  Company Number: US-AMGEN-KDL382075

PATIENT

DRUGS (2)
  1. ENBREL [Suspect]
     Indication: PSORIASIS
     Dosage: 50 MG, QWK
     Route: 058
     Dates: start: 20070927
  2. CLOBETASOL PROPIONATE [Concomitant]
     Dosage: UNK UNK, UNK
     Dates: start: 20091019

REACTIONS (2)
  - JOINT INSTABILITY [None]
  - MUSCULOSKELETAL PAIN [None]
